FAERS Safety Report 6631467-6 (Version None)
Quarter: 2010Q1

REPORT INFORMATION
  Report Type: 
  Country: None (occurrence: None)
  Receive Date: 20100312
  Receipt Date: 20100303
  Transmission Date: 20100710
  Serious: Yes (Hospitalization)
  Sender: FDA-Public Use
  Company Number: US-ASTRAZENECA-2010SE09190

PATIENT
  Age: 64 Year
  Sex: Female
  Weight: 64 kg

DRUGS (17)
  1. SEROQUEL XR [Suspect]
     Indication: DEPRESSION
     Route: 048
     Dates: start: 20090601
  2. SEROQUEL XR [Suspect]
     Route: 048
  3. ATIVAN [Suspect]
     Dates: end: 20090701
  4. VALIUM [Suspect]
     Dates: start: 20090701, end: 20090701
  5. GEODON [Suspect]
     Indication: BIPOLAR II DISORDER
     Dates: start: 20090701, end: 20090101
  6. CHANTIX [Suspect]
     Dates: start: 20081201, end: 20090207
  7. CHANTIX [Suspect]
     Dates: start: 20100208, end: 20100208
  8. CHANTIX [Suspect]
     Dates: start: 20100209
  9. DARVOCET [Suspect]
  10. TEGRETOL [Suspect]
     Dates: end: 20090701
  11. TEGRETOL [Suspect]
     Dates: end: 20090701
  12. PROPRANOLOL [Concomitant]
     Indication: TREMOR
  13. BENADRYL [Concomitant]
     Indication: HYPERSENSITIVITY
  14. WELLBUTRIN [Concomitant]
  15. DESYREL [Concomitant]
  16. SIMVASTATIN [Concomitant]
     Indication: BLOOD CHOLESTEROL INCREASED
  17. LEXAPRO [Concomitant]

REACTIONS (8)
  - AMNESIA [None]
  - CATHETERISATION CARDIAC [None]
  - DEPRESSION [None]
  - EXTRAPYRAMIDAL DISORDER [None]
  - HYPONATRAEMIA [None]
  - MANIA [None]
  - PSYCHOTIC DISORDER [None]
  - TACHYCARDIA [None]
